FAERS Safety Report 5813854-9 (Version None)
Quarter: 2008Q3

REPORT INFORMATION
  Report Type: 
  Country: None (occurrence: None)
  Receive Date: 20080717
  Receipt Date: 20080707
  Transmission Date: 20090109
  Serious: Yes (Life-Threatening)
  Sender: FDA-Public Use
  Company Number: GB-WYE-G01520508

PATIENT
  Age: 9 Year
  Sex: Female
  Weight: 37 kg

DRUGS (8)
  1. RAPAMUNE [Suspect]
     Indication: IMMUNOSUPPRESSION
     Dosage: 1MG, FREQUENCY UNKNOWN
     Route: 048
     Dates: start: 20060705
  2. ALFACALCIDOL [Concomitant]
     Indication: PARATHYROID DISORDER
     Dosage: 250NG, FREQUENCY UNKNOWN
     Route: 048
  3. PREDNISOLONE [Concomitant]
     Indication: IMMUNOSUPPRESSION
     Route: 048
     Dates: start: 20030101
  4. ATORVASTATIN CALCIUM [Concomitant]
     Indication: HYPERTENSION
     Route: 048
     Dates: start: 20070101
  5. AMOXICILLIN + CLAVULANATE POTASSIUM [Concomitant]
     Indication: URINARY TRACT INFECTION
     Dosage: 375MG, FREQUENCY UNKNOWN
     Route: 048
     Dates: start: 20040101
  6. LEVOTHYROXINE SODIUM [Concomitant]
     Indication: HYPOTHYROIDISM
     Dosage: 50 UG, FREQUENCY UNKNOWN
     Route: 048
     Dates: start: 19980101
  7. MYCOPHENOLATE MOFETIL [Suspect]
     Indication: IMMUNOSUPPRESSION
     Route: 048
     Dates: start: 20041101, end: 20080131
  8. AMLODIPINE [Concomitant]
     Indication: HYPERTENSION
     Route: 048
     Dates: start: 20070301, end: 20080228

REACTIONS (1)
  - EPSTEIN-BARR VIRUS ASSOCIATED LYMPHOPROLIFERATIVE DISORDER [None]
